FAERS Safety Report 11112855 (Version 1)
Quarter: 2015Q2

REPORT INFORMATION
  Report Type: Report from Study
  Country: FR (occurrence: None)
  Receive Date: 20150512
  Receipt Date: 20150512
  Transmission Date: 20150821
  Serious: Yes (Hospitalization, Other)
  Sender: FDA-Public Use
  Company Number: B0878154A

PATIENT
  Age: 51 Year
  Sex: Male

DRUGS (10)
  1. NORVIR [Concomitant]
     Active Substance: RITONAVIR
  2. TRIATEC (RAMIPRIL) [Concomitant]
     Active Substance: RAMIPRIL
  3. PREZISTA [Concomitant]
     Active Substance: DARUNAVIR ETHANOLATE
  4. LEXOMIL (BROMAZEPAM) [Concomitant]
     Active Substance: BROMAZEPAM
  5. MARAVIROC (MARAVIROC) FILM-COATED TABLET [Suspect]
     Active Substance: MARAVIROC
     Indication: HIV INFECTION
     Route: 048
     Dates: start: 20080320
  6. LASILIX (FUROSEMIDE) [Concomitant]
     Active Substance: FUROSEMIDE
  7. INTELENCE (ETRAVIRINE) [Concomitant]
  8. BUFLOMEDIL HYDROCHLORIDE [Concomitant]
     Active Substance: BUFLOMEDIL HYDROCHLORIDE
  9. ISENTRESS [Concomitant]
     Active Substance: RALTEGRAVIR POTASSIUM
  10. DOLIPRANE [Concomitant]
     Active Substance: ACETAMINOPHEN

REACTIONS (1)
  - Corneal abscess [None]

NARRATIVE: CASE EVENT DATE: 20110525
